FAERS Safety Report 9478196 (Version 1)
Quarter: 2013Q3

REPORT INFORMATION
  Report Type: Spontaneous
  Country: US (occurrence: US)
  Receive Date: 20130827
  Receipt Date: 20130827
  Transmission Date: 20140515
  Serious: No
  Sender: FDA-Public Use
  Company Number: US-BAYER-2013-100962

PATIENT
  Age: 71 Year
  Sex: Male
  Weight: 88.44 kg

DRUGS (5)
  1. ALEVE CAPLET [Suspect]
     Indication: ARTHRITIS
     Dosage: 1 DF, QD
     Route: 048
  2. LIPITOR [Concomitant]
  3. VITAMIN D [Concomitant]
     Dosage: UNK
  4. AZOPT [Concomitant]
  5. TRAVATAN [Concomitant]
     Dosage: UNK

REACTIONS (2)
  - Expired drug administered [None]
  - Medication error [None]
